FAERS Safety Report 16962226 (Version 1)
Quarter: 2019Q4

REPORT INFORMATION
  Report Type: Spontaneous
  Country: FR (occurrence: FR)
  Receive Date: 20191025
  Receipt Date: 20191025
  Transmission Date: 20200122
  Serious: Yes (Death, Hospitalization, Other)
  Sender: FDA-Public Use
  Company Number: FR-SA-2019SA292908

PATIENT
  Age: 62 Year
  Sex: Male

DRUGS (5)
  1. LANTUS [Suspect]
     Active Substance: INSULIN GLARGINE
     Indication: TYPE 2 DIABETES MELLITUS
     Dosage: 40 MG / DAY IN THE MORNING
     Route: 058
     Dates: start: 201810
  2. PREDNISONE. [Suspect]
     Active Substance: PREDNISONE
     Indication: PRODUCT USED FOR UNKNOWN INDICATION
     Dosage: 40 MG / DAY IN THE MORNING
     Route: 048
     Dates: start: 20171024
  3. LOMUSTINE. [Suspect]
     Active Substance: LOMUSTINE
     Indication: GLIOBLASTOMA
     Dosage: 200 MG, QCY
     Route: 048
     Dates: start: 20180212, end: 20181010
  4. BEVACIZUMAB. [Suspect]
     Active Substance: BEVACIZUMAB
     Indication: GLIOBLASTOMA
     Dosage: 10 MG/KG, QCY
     Route: 042
     Dates: start: 20180307, end: 20190612
  5. LEVETIRACETAM. [Suspect]
     Active Substance: LEVETIRACETAM
     Indication: GLIOBLASTOMA
     Dosage: 500 MG MORNING AND EVENING
     Route: 048
     Dates: start: 20180109

REACTIONS (2)
  - Acute hepatic failure [Fatal]
  - Cholestasis [Fatal]

NARRATIVE: CASE EVENT DATE: 20181105
